FAERS Safety Report 6715142-5 (Version None)
Quarter: 2010Q2

REPORT INFORMATION
  Report Type: 
  Country: None (occurrence: None)
  Receive Date: 20100506
  Receipt Date: 20100506
  Transmission Date: 20101027
  Serious: Yes (Life-Threatening)
  Sender: FDA-Public Use
  Company Number: None

PATIENT
  Sex: Male
  Weight: 88.905 kg

DRUGS (6)
  1. LOSARTAN POTASSIUM AND HYDROCHLOROTHIAZIDE [Suspect]
     Indication: DIABETIC NEPHROPATHY
     Dosage: 1 TABLET Q DAY P.O. (047)
     Route: 048
     Dates: start: 20100411, end: 20100427
  2. LOSARTAN POTASSIUM AND HYDROCHLOROTHIAZIDE [Suspect]
     Indication: HYPERTENSION
     Dosage: 1 TABLET Q DAY P.O. (047)
     Route: 048
     Dates: start: 20100411, end: 20100427
  3. JANUVIA [Concomitant]
  4. METFORMIN GENERIC [Concomitant]
  5. SIMVASTATIN [Concomitant]
  6. LOTREL [Concomitant]

REACTIONS (3)
  - BLOOD PRESSURE INADEQUATELY CONTROLLED [None]
  - BLOOD PRESSURE INCREASED [None]
  - PRODUCT SUBSTITUTION ISSUE [None]
